FAERS Safety Report 11108280 (Version 1)
Quarter: 2015Q2

REPORT INFORMATION
  Report Type: Spontaneous
  Country: US (occurrence: US)
  Receive Date: 20150512
  Receipt Date: 20150512
  Transmission Date: 20150821
  Serious: No
  Sender: FDA-Public Use
  Company Number: US-GLAXOSMITHKLINE-US2015062550

PATIENT
  Sex: Male

DRUGS (3)
  1. FLONASE [Suspect]
     Active Substance: FLUTICASONE PROPIONATE
     Indication: MULTIPLE ALLERGIES
     Dosage: 1 PUFF(S), QD
     Route: 045
     Dates: start: 2013
  2. VERAMYST [Suspect]
     Active Substance: FLUTICASONE FUROATE
     Indication: NASAL CONGESTION
  3. VERAMYST [Suspect]
     Active Substance: FLUTICASONE FUROATE
     Indication: MULTIPLE ALLERGIES
     Dosage: 1 PUFF(S), 1D
     Route: 045
     Dates: start: 2012

REACTIONS (7)
  - Nervous system disorder [Unknown]
  - Epistaxis [Recovered/Resolved]
  - Paranasal sinus discomfort [Unknown]
  - Feeling abnormal [Unknown]
  - Rhinitis [Recovered/Resolved]
  - Drug ineffective [Unknown]
  - Weight decreased [Unknown]

NARRATIVE: CASE EVENT DATE: 2012
